FAERS Safety Report 4328222-9 (Version None)
Quarter: 2004Q1

REPORT INFORMATION
  Report Type: 
  Country: None (occurrence: None)
  Receive Date: 20040331
  Receipt Date: 20040322
  Transmission Date: 20041129
  Serious: Yes (Hospitalization)
  Sender: FDA-Public Use
  Company Number: GB-BRISTOL-MYERS SQUIBB COMPANY-12538252

PATIENT
  Age: 6 Year
  Sex: Female

DRUGS (2)
  1. DIDANOSINE [Suspect]
  2. STAVUDINE [Suspect]

REACTIONS (20)
  - ABDOMINAL PAIN [None]
  - AREFLEXIA [None]
  - ASPIRATION BONE MARROW ABNORMAL [None]
  - BLOOD FIBRINOGEN INCREASED [None]
  - BRAIN OEDEMA [None]
  - COMA [None]
  - CONFUSIONAL STATE [None]
  - EXOPHTHALMOS [None]
  - EYE PRURITUS [None]
  - FIBRIN D DIMER INCREASED [None]
  - HEPATOSPLENOMEGALY [None]
  - HYPERURICAEMIA [None]
  - LACTIC ACIDOSIS [None]
  - LEUKAEMOID REACTION [None]
  - PANCREATIC ENLARGEMENT [None]
  - REYE'S SYNDROME [None]
  - SOMNOLENCE [None]
  - ULTRASOUND SCAN ABNORMAL [None]
  - VOMITING [None]
  - WHITE BLOOD CELL COUNT INCREASED [None]
